FAERS Safety Report 7842768-8 (Version None)
Quarter: 2011Q4

REPORT INFORMATION
  Report Type: 
  Country: None (occurrence: None)
  Receive Date: 20111024
  Receipt Date: 20111024
  Transmission Date: 20120403
  Serious: Yes (Other)
  Sender: FDA-Public Use
  Company Number: None

PATIENT
  Age: 54 Year
  Sex: Female
  Weight: 57.6068 kg

DRUGS (1)
  1. ASPIRIN 300MG, CAFFEINE 40MG, BUTALBITAL 50MG CAP [Suspect]
     Indication: MIGRAINE
     Dosage: 1-2 CAPSULE EVERY 4 HRS AS NEEDED
     Dates: start: 20110927, end: 20111003

REACTIONS (8)
  - DIARRHOEA [None]
  - MYALGIA [None]
  - PALPITATIONS [None]
  - CHEST PAIN [None]
  - VERTIGO [None]
  - BONE PAIN [None]
  - NAUSEA [None]
  - CAPSULE PHYSICAL ISSUE [None]
